FAERS Safety Report 5472056-9 (Version None)
Quarter: 2007Q3

REPORT INFORMATION
  Report Type: 
  Country: None (occurrence: None)
  Receive Date: 20070928
  Receipt Date: 20070919
  Transmission Date: 20080115
  Serious: Yes (Other)
  Sender: FDA-Public Use
  Company Number: AT-PFIZER INC-2007078420

PATIENT
  Sex: Female

DRUGS (1)
  1. DALACIN [Suspect]
     Indication: DENTAL OPERATION
     Route: 048

REACTIONS (2)
  - ACUTE MYOCARDIAL INFARCTION [None]
  - ORAL DISORDER [None]
